FAERS Safety Report 11226480 (Version 1)
Quarter: 2015Q2

REPORT INFORMATION
  Report Type: Report from Study
  Country: BR (occurrence: BR)
  Receive Date: 20150629
  Receipt Date: 20150629
  Transmission Date: 20150821
  Serious: Yes (Other)
  Sender: FDA-Public Use
  Company Number: PHHY2015BR074359

PATIENT
  Sex: Female
  Weight: 45 kg

DRUGS (1)
  1. ACLASTA [Suspect]
     Active Substance: ZOLEDRONIC ACID
     Indication: OSTEOPOROSIS
     Dosage: 5 MG, PER YEAR
     Route: 065
     Dates: start: 201410, end: 201410

REACTIONS (6)
  - Fall [Unknown]
  - Nausea [Unknown]
  - Abasia [Unknown]
  - Movement disorder [Unknown]
  - Dysstasia [Unknown]
  - Back pain [Unknown]
